FAERS Safety Report 7220430-2 (Version None)
Quarter: 2010Q4

REPORT INFORMATION
  Report Type: 
  Country: None (occurrence: None)
  Receive Date: 20101230
  Receipt Date: 20101206
  Transmission Date: 20110411
  Serious: Yes (Hospitalization, Disabling, Other)
  Sender: FDA-Public Use
  Company Number: 2010SP063630

PATIENT
  Age: 40 Year
  Sex: Female

DRUGS (5)
  1. INTERFERON (MANUFACTURER UNKNOWN) (INTERFERON ALFA-2B) [Suspect]
     Indication: HEPATITIS C
     Dosage: 3 MIU; TIW;
     Dates: start: 20010122, end: 20010801
  2. REBETOL [Suspect]
     Indication: HEPATITIS C
     Dosage: 1000 MG;
     Dates: start: 20010122, end: 20010801
  3. AMOXICILLIN [Concomitant]
  4. MYCOSTATIN [Concomitant]
  5. CLARITIN [Concomitant]

REACTIONS (45)
  - ABDOMINAL PAIN [None]
  - ANORGASMIA [None]
  - ARTHRALGIA [None]
  - AUTOIMMUNE DISORDER [None]
  - BACK PAIN [None]
  - BONE MARROW FAILURE [None]
  - BONE PAIN [None]
  - BRONCHITIS CHRONIC [None]
  - CARDIAC FAILURE [None]
  - CHEST PAIN [None]
  - CONSTIPATION [None]
  - DISTURBANCE IN ATTENTION [None]
  - DRUG INEFFECTIVE [None]
  - DRY MOUTH [None]
  - DRY SKIN [None]
  - DRY THROAT [None]
  - EPISTAXIS [None]
  - FATIGUE [None]
  - FEELING COLD [None]
  - FIBROMYALGIA [None]
  - FLATULENCE [None]
  - GENERAL PHYSICAL HEALTH DETERIORATION [None]
  - GINGIVAL BLEEDING [None]
  - HAEMATOCHEZIA [None]
  - HEADACHE [None]
  - HEPATIC CIRRHOSIS [None]
  - HYPERTROPHIC CARDIOMYOPATHY [None]
  - IMMUNOSUPPRESSION [None]
  - LARYNGITIS [None]
  - LOSS OF LIBIDO [None]
  - MENSTRUATION IRREGULAR [None]
  - MUSCULOSKELETAL STIFFNESS [None]
  - MYALGIA [None]
  - NASAL DRYNESS [None]
  - OCULAR HYPERAEMIA [None]
  - OEDEMA PERIPHERAL [None]
  - ORAL FUNGAL INFECTION [None]
  - PALPITATIONS [None]
  - PAROTID GLAND INFLAMMATION [None]
  - PSORIASIS [None]
  - RESPIRATORY TRACT INFECTION [None]
  - TONGUE DISORDER [None]
  - URINARY TRACT INFECTION [None]
  - VISION BLURRED [None]
  - VULVOVAGINAL DRYNESS [None]
